FAERS Safety Report 5541734-5 (Version None)
Quarter: 2007Q4

REPORT INFORMATION
  Report Type: 
  Country: None (occurrence: None)
  Receive Date: 20071129
  Receipt Date: 20070719
  Transmission Date: 20080405
  Serious: Yes (Hospitalization, Other)
  Sender: FDA-Public Use
  Company Number: US200707004461

PATIENT
  Age: 54 Year
  Sex: Female
  Weight: 142.4 kg

DRUGS (1)
  1. ZYPREXA [Suspect]
     Dosage: 10 MG
     Dates: start: 19970101, end: 20050901

REACTIONS (4)
  - DIABETES MELLITUS [None]
  - DIABETIC COMA [None]
  - DIABETIC KETOACIDOSIS [None]
  - HYPERGLYCAEMIA [None]
